FAERS Safety Report 5382846-9 (Version None)
Quarter: 2007Q3

REPORT INFORMATION
  Report Type: 
  Country: None (occurrence: None)
  Receive Date: 20070710
  Receipt Date: 20070627
  Transmission Date: 20080115
  Serious: Yes (Other)
  Sender: FDA-Public Use
  Company Number: GB-AMGEN-US231260

PATIENT
  Sex: Female

DRUGS (4)
  1. ENBREL [Suspect]
     Indication: MUSCULOSKELETAL PAIN
     Route: 065
     Dates: start: 20040619
  2. ENBREL [Suspect]
     Route: 065
     Dates: start: 20070501
  3. COLOMYCIN [Concomitant]
     Indication: INFECTION PROPHYLAXIS
     Dosage: UNKNOWN
     Route: 055
  4. VENTOLIN [Concomitant]
     Dosage: UNKNOWN
     Route: 065

REACTIONS (2)
  - RESPIRATORY TRACT INFECTION [None]
  - STAPHYLOCOCCAL INFECTION [None]
